FAERS Safety Report 19269226 (Version 5)
Quarter: 2021Q2

REPORT INFORMATION
  Report Type: Report from Study
  Country: US (occurrence: US)
  Receive Date: 20210517
  Receipt Date: 20210624
  Transmission Date: 20210717
  Serious: Yes (Hospitalization)
  Sender: FDA-Public Use
  Company Number: US-SEATTLE GENETICS-2021SGN01974

PATIENT
  Age: 53 Year
  Sex: Female

DRUGS (1)
  1. TUCATINIB [Suspect]
     Active Substance: TUCATINIB
     Indication: BREAST CANCER FEMALE
     Dosage: UNK

REACTIONS (9)
  - Headache [Unknown]
  - Pruritus [Unknown]
  - Diarrhoea [Unknown]
  - Dehydration [Unknown]
  - Memory impairment [Unknown]
  - Intestinal obstruction [Unknown]
  - Hospitalisation [Unknown]
  - Product dose omission in error [Unknown]
  - Rash [Unknown]

NARRATIVE: CASE EVENT DATE: 20210617
